FAERS Safety Report 15282414 (Version 1)
Quarter: 2018Q3

REPORT INFORMATION
  Report Type: Spontaneous
  Country: US (occurrence: US)
  Receive Date: 20180816
  Receipt Date: 20180816
  Transmission Date: 20181010
  Serious: No
  Sender: FDA-Public Use
  Company Number: US-B.I. PHARMACEUTICALS,INC./RIDGEFIELD-2018-BI-040363

PATIENT
  Sex: Male

DRUGS (1)
  1. CATAPRES?TTS [Suspect]
     Active Substance: CLONIDINE
     Indication: HYPERTENSION
     Dosage: 1 PATCH WEEKLY;  FORM STRENGTH: 7.5 MG (0.3 MG / DAY); FORMULATION: PATCH
     Route: 061
     Dates: start: 1997

REACTIONS (1)
  - Drug ineffective [Recovered/Resolved]
